FAERS Safety Report 6384336-3 (Version None)
Quarter: 2009Q4

REPORT INFORMATION
  Report Type: 
  Country: None (occurrence: None)
  Receive Date: 20091001
  Receipt Date: 20090929
  Transmission Date: 20100525
  Serious: Yes (Hospitalization)
  Sender: FDA-Public Use
  Company Number: AT-BRISTOL-MYERS SQUIBB COMPANY-14800684

PATIENT
  Age: 52 Year
  Sex: Male

DRUGS (2)
  1. ABILIFY [Suspect]
     Indication: SCHIZOAFFECTIVE DISORDER
     Dosage: INITIATED AT 5MG/D, INCREASED TO 10MG/D ON 9FEB09
     Route: 048
     Dates: start: 20090204, end: 20090212
  2. TEMESTA [Suspect]
     Route: 048

REACTIONS (4)
  - AGGRESSION [None]
  - AGITATION [None]
  - HALLUCINATION, AUDITORY [None]
  - PSYCHOTIC DISORDER [None]
